FAERS Safety Report 4840476-9 (Version None)
Quarter: 2005Q4

REPORT INFORMATION
  Report Type: 
  Country: None (occurrence: None)
  Receive Date: 20051130
  Receipt Date: 20050801
  Transmission Date: 20060501
  Serious: Yes (Other)
  Sender: FDA-Public Use
  Company Number: US-BRISTOL-MYERS SQUIBB COMPANY-13058607

PATIENT
  Age: 55 Year
  Sex: Female

DRUGS (2)
  1. ERBITUX [Suspect]
     Indication: COLORECTAL CANCER
     Dosage: FIRST INFUSION.
     Route: 042
     Dates: start: 20050718, end: 20050718
  2. CELEBREX [Concomitant]

REACTIONS (1)
  - INFUSION RELATED REACTION [None]
